FAERS Safety Report 6787956-7 (Version None)
Quarter: 2010Q2

REPORT INFORMATION
  Report Type: 
  Country: None (occurrence: None)
  Receive Date: 20100623
  Receipt Date: 20071127
  Transmission Date: 20101027
  Serious: No
  Sender: FDA-Public Use
  Company Number: US-PFIZER INC-2007099945

PATIENT
  Sex: Female
  Weight: 61.363 kg

DRUGS (2)
  1. DEPO-PROVERA SUSPENSION/INJ [Suspect]
     Indication: CONTRACEPTION
     Route: 030
     Dates: start: 20030701, end: 20070401
  2. SYNTHROID [Concomitant]

REACTIONS (12)
  - ARTHRALGIA [None]
  - CARPAL TUNNEL SYNDROME [None]
  - DIPLOPIA [None]
  - DIZZINESS [None]
  - FATIGUE [None]
  - HEADACHE [None]
  - MENORRHAGIA [None]
  - PAIN IN EXTREMITY [None]
  - RASH [None]
  - TENDONITIS [None]
  - THYROID FUNCTION TEST ABNORMAL [None]
  - WEIGHT INCREASED [None]
